FAERS Safety Report 14612117 (Version 1)
Quarter: 2018Q1

REPORT INFORMATION
  Report Type: Spontaneous
  Country: JP (occurrence: JP)
  Receive Date: 20180308
  Receipt Date: 20180308
  Transmission Date: 20180509
  Serious: Yes (Hospitalization, Other)
  Sender: FDA-Public Use
  Company Number: JP-ROCHE-2083831

PATIENT
  Age: 70 Year
  Sex: Female
  Weight: 47 kg

DRUGS (6)
  1. ISOTONIC SODIUM CHLORIDE SOLUTION KIT H [Concomitant]
     Dosage: DOSAGE IS UNCERTAIN.
     Route: 065
  2. KADCYLA [Suspect]
     Active Substance: ADO-TRASTUZUMAB EMTANSINE
     Indication: BREAST CANCER
     Dosage: MOST RECENT DOSE WAS ADMINISTERED ON 29/JAN/2018
     Route: 041
     Dates: start: 20180129
  3. CADETHIA COMBINATION TABLET HD [Concomitant]
     Dosage: DOSAGE IS UNCERTAIN.
     Route: 048
  4. ROSUVASTATIN. [Concomitant]
     Active Substance: ROSUVASTATIN
     Dosage: DOSAGE IS UNCERTAIN.
     Route: 048
  5. FARESTON [Concomitant]
     Active Substance: TOREMIFENE CITRATE
     Dosage: DOSAGE IS UNCERTAIN.
     Route: 048
  6. KARY UNI [Concomitant]
     Active Substance: PIRENOXINE
     Dosage: DOSAGE IS UNCERTAIN.
     Route: 047

REACTIONS (2)
  - Malignant pleural effusion [Unknown]
  - Infusion related reaction [Recovering/Resolving]

NARRATIVE: CASE EVENT DATE: 20180129
